FAERS Safety Report 5965621-3 (Version None)
Quarter: 2008Q4

REPORT INFORMATION
  Report Type: 
  Country: None (occurrence: None)
  Receive Date: 20081121
  Receipt Date: 20081121
  Transmission Date: 20090506
  Serious: Yes (Other)
  Sender: FDA-Public Use
  Company Number: None

PATIENT
  Age: 40 Year
  Sex: Male
  Weight: 83.9154 kg

DRUGS (1)
  1. CARISOPRODOL [Suspect]
     Indication: BACK PAIN
     Dosage: 1 TABLET 1 AT BEDTIME PO  ONCE
     Route: 048
     Dates: start: 20081117, end: 20081117

REACTIONS (3)
  - DEAFNESS TRANSITORY [None]
  - DEAFNESS UNILATERAL [None]
  - TINNITUS [None]
